FAERS Safety Report 17414996 (Version 4)
Quarter: 2021Q3

REPORT INFORMATION
  Report Type: Spontaneous
  Country: JP (occurrence: JP)
  Receive Date: 20200213
  Receipt Date: 20210812
  Transmission Date: 20211014
  Serious: Yes (Other)
  Sender: FDA-Public Use
  Company Number: JP-AMGEN-JPNSP2020023585

PATIENT
  Age: 77 Year
  Sex: Female
  Weight: 49 kg

DRUGS (2)
  1. EDIROL [Concomitant]
     Active Substance: ELDECALCITOL
     Indication: OSTEOPOROSIS
     Dosage: UNK UNK, QD
     Dates: start: 2015
  2. EVENITY [Suspect]
     Active Substance: ROMOSOZUMAB-AQQG
     Indication: OSTEOPOROSIS
     Dosage: 210 MILLIGRAM, QMO
     Route: 058
     Dates: start: 20190409

REACTIONS (2)
  - Fall [Recovered/Resolved]
  - Thoracic vertebral fracture [Recovered/Resolved]

NARRATIVE: CASE EVENT DATE: 20191205
